FAERS Safety Report 5086171-5 (Version None)
Quarter: 2006Q3

REPORT INFORMATION
  Report Type: 
  Country: None (occurrence: None)
  Receive Date: 20060818
  Receipt Date: 20060809
  Transmission Date: 20061208
  Serious: Yes (Life-Threatening)
  Sender: FDA-Public Use
  Company Number: 2006097137

PATIENT
  Age: 51 Year
  Sex: Male

DRUGS (2)
  1. VFEND [Suspect]
     Indication: CEREBRAL ASPERGILLOSIS
     Dosage: 300 MG (UNKNOWN), INTRAVENOUS
     Route: 042
     Dates: start: 20060512
  2. MICAFUNGIN (MICAFUNGIN) [Suspect]
     Indication: ASPERGILLOSIS
     Dosage: 300 MG (UNKNOWN), INTRAVENOUS
     Route: 042
     Dates: start: 20060501, end: 20060501

REACTIONS (3)
  - CARDIAC ARREST [None]
  - INTRAVASCULAR HAEMOLYSIS [None]
  - SHOCK [None]
